FAERS Safety Report 25249982 (Version 1)
Quarter: 2025Q2

REPORT INFORMATION
  Report Type: Spontaneous
  Country: US (occurrence: US)
  Receive Date: 20250429
  Receipt Date: 20250429
  Transmission Date: 20250716
  Serious: Yes (Hospitalization)
  Sender: AUROBINDO
  Company Number: US-AUROBINDO-AUR-APL-2022-027604

PATIENT
  Age: 38 Year
  Sex: Female

DRUGS (28)
  1. KETAMINE HYDROCHLORIDE [Suspect]
     Active Substance: KETAMINE HYDROCHLORIDE
     Indication: Hyperaesthesia
     Dosage: 0.2 MILLIGRAM/KILOGRAM, EVERY HOUR, INFUSION
     Route: 050
  2. KETAMINE HYDROCHLORIDE [Suspect]
     Active Substance: KETAMINE HYDROCHLORIDE
     Route: 050
  3. KETAMINE HYDROCHLORIDE [Suspect]
     Active Substance: KETAMINE HYDROCHLORIDE
     Route: 065
  4. FLUOROURACIL [Suspect]
     Active Substance: FLUOROURACIL
     Indication: Neuroendocrine tumour
     Route: 065
  5. CARBOPLATIN [Suspect]
     Active Substance: CARBOPLATIN
     Indication: Neuroendocrine tumour
     Route: 065
  6. GABAPENTIN [Suspect]
     Active Substance: GABAPENTIN
     Indication: Cancer pain
     Route: 065
  7. METHADONE [Suspect]
     Active Substance: METHADONE HYDROCHLORIDE
     Indication: Cancer pain
     Route: 048
  8. METHADONE [Suspect]
     Active Substance: METHADONE HYDROCHLORIDE
     Route: 048
  9. SERTRALINE [Suspect]
     Active Substance: SERTRALINE HYDROCHLORIDE
     Indication: Major depression
     Route: 065
  10. MIRTAZAPINE [Suspect]
     Active Substance: MIRTAZAPINE
     Indication: Major depression
     Route: 065
  11. OXYCODONE [Suspect]
     Active Substance: OXYCODONE
     Indication: Cancer pain
     Dosage: AS NEEDED. FORMULATION: IMMEDIATE RELEASE
     Route: 065
  12. OXYCODONE [Suspect]
     Active Substance: OXYCODONE
     Dosage: DOSE INCREASED; AS NEEDED
     Route: 065
  13. OXYCODONE [Suspect]
     Active Substance: OXYCODONE
     Dosage: 120 MILLIGRAM, TWO TIMES A DAY (CONTINUOUS RELEASE; AS NEEDED. FORMULATION: CONTINUOUS RELEASE)
     Route: 065
  14. HYDROMORPHONE [Suspect]
     Active Substance: HYDROMORPHONE
     Indication: Cancer pain
     Dosage: 6 MILLIGRAM, Q2H
     Route: 065
  15. HYDROMORPHONE [Suspect]
     Active Substance: HYDROMORPHONE
     Route: 041
  16. HYDROMORPHONE [Suspect]
     Active Substance: HYDROMORPHONE
     Route: 041
  17. HYDROMORPHONE [Suspect]
     Active Substance: HYDROMORPHONE
     Route: 040
  18. LORAZEPAM [Suspect]
     Active Substance: LORAZEPAM
     Indication: Anxiety
     Route: 042
  19. DULOXETINE [Suspect]
     Active Substance: DULOXETINE
     Indication: Cancer pain
     Route: 065
  20. CHLORPROMAZINE HYDROCHLORIDE [Suspect]
     Active Substance: CHLORPROMAZINE HYDROCHLORIDE
     Indication: Product used for unknown indication
     Route: 065
  21. ETOPOSIDE [Suspect]
     Active Substance: ETOPOSIDE
     Indication: Neuroendocrine tumour
     Route: 065
  22. DOXORUBICIN [Suspect]
     Active Substance: DOXORUBICIN
     Indication: Neuroendocrine tumour
     Route: 065
  23. MIDAZOLAM [Suspect]
     Active Substance: MIDAZOLAM
     Indication: Delirium
     Route: 050
  24. MIDAZOLAM [Suspect]
     Active Substance: MIDAZOLAM
     Route: 050
  25. PEMBROLIZUMAB [Suspect]
     Active Substance: PEMBROLIZUMAB
     Indication: Neuroendocrine tumour
     Route: 065
  26. STREPTOZOCIN [Suspect]
     Active Substance: STREPTOZOCIN
     Indication: Neuroendocrine tumour
     Route: 065
  27. DEXAMETHASONE [Concomitant]
     Active Substance: DEXAMETHASONE
     Indication: Product used for unknown indication
     Dosage: 12 MILLIGRAM, QD
     Route: 042
  28. ACETAMINOPHEN [Concomitant]
     Active Substance: ACETAMINOPHEN
     Indication: Product used for unknown indication
     Route: 065

REACTIONS (2)
  - Hyperaesthesia [Recovering/Resolving]
  - Drug ineffective [Unknown]
